FAERS Safety Report 9433907 (Version 2)
Quarter: 2013Q3

REPORT INFORMATION
  Report Type: Report from Study
  Country: US (occurrence: US)
  Receive Date: 20130801
  Receipt Date: 20130802
  Transmission Date: 20140515
  Serious: No
  Sender: FDA-Public Use
  Company Number: PHEH2013US016022

PATIENT
  Age: 44 Year
  Sex: Male

DRUGS (2)
  1. GILENYA [Suspect]
     Indication: MULTIPLE SCLEROSIS
     Dosage: 0.5 MG, QD
     Route: 048
     Dates: start: 201302
  2. LISINOPRIL [Suspect]

REACTIONS (2)
  - Blood pressure increased [Not Recovered/Not Resolved]
  - Cough [Unknown]
